FAERS Safety Report 6717603-1 (Version None)
Quarter: 2010Q2

REPORT INFORMATION
  Report Type: 
  Country: None (occurrence: None)
  Receive Date: 20100505
  Receipt Date: 20100421
  Transmission Date: 20101027
  Serious: Yes (Hospitalization, Other)
  Sender: FDA-Public Use
  Company Number: WAES 1004USA04603

PATIENT
  Age: 69 Year
  Sex: Female
  Weight: 38.5557 kg

DRUGS (8)
  1. CAP VORINOSTAT UNK [Suspect]
     Indication: MANTLE CELL LYMPHOMA
     Dosage: 600 MG/BID/PO
     Route: 048
     Dates: start: 20100407, end: 20100411
  2. INFUSION (FORM) RITUXIMAB UNK [Suspect]
     Indication: MANTLE CELL LYMPHOMA
     Dosage: 500 MG/IV
     Route: 042
     Dates: start: 20100409, end: 20100411
  3. IFOSFAMIDE [Suspect]
     Indication: MANTLE CELL LYMPHOMA
     Dosage: 85 GM/DAILY/IV
     Route: 042
     Dates: start: 20100409, end: 20100411
  4. CARBOPLATIN [Suspect]
     Indication: MANTLE CELL LYMPHOMA
     Dosage: 350 MG/DAILY/IV
     Route: 042
     Dates: start: 20100409, end: 20100411
  5. ETOPOSIDE [Suspect]
     Indication: MANTLE CELL LYMPHOMA
     Dosage: 137 MG/DAILY/IV
     Route: 042
     Dates: start: 20100409, end: 20100411
  6. LOPERAMIDE HYDROCHLORIDE [Concomitant]
  7. MESNA [Concomitant]
  8. ONDANSETRON [Concomitant]

REACTIONS (21)
  - ABDOMINAL PAIN [None]
  - ALANINE AMINOTRANSFERASE INCREASED [None]
  - ASPARTATE AMINOTRANSFERASE INCREASED [None]
  - ASTHENIA [None]
  - BLOOD BICARBONATE DECREASED [None]
  - BLOOD GLUCOSE INCREASED [None]
  - BLOOD UREA INCREASED [None]
  - CHILLS [None]
  - DECREASED APPETITE [None]
  - DEHYDRATION [None]
  - DIARRHOEA [None]
  - DIZZINESS [None]
  - DYSPNOEA [None]
  - DYSURIA [None]
  - HYPERHIDROSIS [None]
  - NAUSEA [None]
  - PANCYTOPENIA [None]
  - PRODUCTIVE COUGH [None]
  - PYREXIA [None]
  - TRANSAMINASES INCREASED [None]
  - VOMITING [None]
